FAERS Safety Report 12212006 (Version 1)
Quarter: 2016Q1

REPORT INFORMATION
  Report Type: Spontaneous
  Country: RU (occurrence: RU)
  Receive Date: 20160325
  Receipt Date: 20160325
  Transmission Date: 20160526
  Serious: Yes (Other)
  Sender: FDA-Public Use
  Company Number: PHHY2016RU035710

PATIENT
  Age: 25 Year
  Sex: Male

DRUGS (10)
  1. IMATINIB [Suspect]
     Active Substance: IMATINIB
     Indication: B PRECURSOR TYPE ACUTE LEUKAEMIA
     Dosage: 400 MG, QD (DAILY)
     Route: 065
     Dates: start: 20140828
  2. GRANULOCYTE COLONY STIMULATING FACTOR [Concomitant]
     Active Substance: GRANULOCYTE COLONY-STIMULATING FACTOR NOS
     Indication: B PRECURSOR TYPE ACUTE LEUKAEMIA
     Dosage: UNK
     Route: 065
     Dates: start: 20160213
  3. DASATINIB [Concomitant]
     Active Substance: DASATINIB
     Indication: B PRECURSOR TYPE ACUTE LEUKAEMIA
     Dosage: 140 MG, QD (DAILY)
     Route: 065
     Dates: start: 20150618
  4. CYTARABINE. [Concomitant]
     Active Substance: CYTARABINE
     Indication: B PRECURSOR TYPE ACUTE LEUKAEMIA
     Dosage: UNK
     Route: 065
     Dates: start: 20160213
  5. PEG/L-ASPARAGINASE [Suspect]
     Active Substance: PEGASPARGASE
     Indication: B PRECURSOR TYPE ACUTE LEUKAEMIA
     Dosage: UNK
     Route: 065
     Dates: start: 20160128, end: 20160202
  6. NILOTINIB [Suspect]
     Active Substance: NILOTINIB
     Indication: B PRECURSOR TYPE ACUTE LEUKAEMIA
     Dosage: 800 MG, QD (DAILY)
     Route: 065
     Dates: start: 20151221
  7. METHOTREXATE SODIUM INJECTION [Suspect]
     Active Substance: METHOTREXATE SODIUM
     Indication: B PRECURSOR TYPE ACUTE LEUKAEMIA
     Dosage: 1.7 G, ONCE/SINGLE
     Route: 042
     Dates: start: 20160128, end: 20160202
  8. DEXASONE /00016001/ [Suspect]
     Active Substance: DEXAMETHASONE
     Indication: B PRECURSOR TYPE ACUTE LEUKAEMIA
     Dosage: UNK
     Route: 065
     Dates: start: 20160128, end: 20160202
  9. FLUDARABINE [Concomitant]
     Active Substance: FLUDARABINE PHOSPHATE
     Indication: B PRECURSOR TYPE ACUTE LEUKAEMIA
     Dosage: UNK
     Route: 065
     Dates: start: 20160213
  10. BLINATUMOMAB [Suspect]
     Active Substance: BLINATUMOMAB
     Indication: B PRECURSOR TYPE ACUTE LEUKAEMIA
     Dosage: 18-}36 UG, QD (PER DAY)
     Route: 041
     Dates: start: 20151221

REACTIONS (22)
  - Product use issue [Unknown]
  - Heart rate increased [Unknown]
  - Acute lymphocytic leukaemia recurrent [Not Recovered/Not Resolved]
  - Lymphocyte percentage increased [Unknown]
  - Plateletcrit decreased [Unknown]
  - Blood fibrinogen decreased [Unknown]
  - Sinus tachycardia [Unknown]
  - Monocytosis [Unknown]
  - Monocyte percentage increased [Unknown]
  - Blood creatinine increased [Unknown]
  - Haemoglobin decreased [Unknown]
  - Thrombocytopenia [Unknown]
  - Red blood cell count decreased [Unknown]
  - No therapeutic response [Not Recovered/Not Resolved]
  - Basophil percentage increased [Unknown]
  - Activated partial thromboplastin time prolonged [Unknown]
  - Protein total decreased [Unknown]
  - Haematocrit decreased [Unknown]
  - Basophil count increased [Unknown]
  - Lymphocyte count increased [Unknown]
  - Neutrophil percentage decreased [Unknown]
  - Neutrophil count decreased [Unknown]

NARRATIVE: CASE EVENT DATE: 20160127
